FAERS Safety Report 9296935 (Version 1)
Quarter: 2013Q2

REPORT INFORMATION
  Report Type: Spontaneous
  Country: US (occurrence: US)
  Receive Date: 20130518
  Receipt Date: 20130518
  Transmission Date: 20140414
  Serious: Yes (Other)
  Sender: FDA-Public Use
  Company Number: US-ROCHE-1223820

PATIENT
  Age: 15 Year
  Sex: Male

DRUGS (7)
  1. RITUXIMAB [Suspect]
     Indication: B-CELL TYPE ACUTE LEUKAEMIA
     Route: 065
  2. VINCRISTINE [Suspect]
     Indication: B-CELL TYPE ACUTE LEUKAEMIA
     Route: 065
  3. METHYLPREDNISOLONE [Suspect]
     Indication: B-CELL TYPE ACUTE LEUKAEMIA
     Route: 065
  4. METHOTREXATE [Suspect]
     Indication: B-CELL TYPE ACUTE LEUKAEMIA
     Route: 037
  5. CYCLOPHOSPHAMIDE [Suspect]
     Indication: B-CELL TYPE ACUTE LEUKAEMIA
     Route: 065
  6. CYTARABINE [Suspect]
     Indication: B-CELL TYPE ACUTE LEUKAEMIA
     Route: 065
  7. HYDROCORTISONE [Suspect]
     Indication: B-CELL TYPE ACUTE LEUKAEMIA
     Route: 065

REACTIONS (1)
  - Guillain-Barre syndrome [Recovering/Resolving]
